FAERS Safety Report 5483484-X (Version None)
Quarter: 2007Q4

REPORT INFORMATION
  Report Type: 
  Country: None (occurrence: None)
  Receive Date: 20071009
  Receipt Date: 20071004
  Transmission Date: 20080405
  Serious: Yes (Disabling, Other)
  Sender: FDA-Public Use
  Company Number: US-GDP-0714907

PATIENT
  Age: 50 Year
  Sex: Female
  Weight: 54.4316 kg

DRUGS (9)
  1. METROGEL [Suspect]
     Indication: ROSACEA
     Dosage: 1 APP BID TP
     Route: 061
     Dates: start: 19990914, end: 20000127
  2. CIMETIDINE [Concomitant]
  3. DIAZEPAM [Concomitant]
  4. DEPAKOTE [Concomitant]
  5. PREMARIN [Concomitant]
  6. MEDROXYPROGESTERONE [Concomitant]
  7. MECLIZINE [Concomitant]
  8. CEPHALEXIN [Concomitant]
  9. ZARONTIN [Concomitant]

REACTIONS (6)
  - BALANCE DISORDER [None]
  - BURNING SENSATION [None]
  - HYPOAESTHESIA [None]
  - NEUROPATHY [None]
  - PARAESTHESIA [None]
  - SKIN DISORDER [None]
